FAERS Safety Report 19439453 (Version 1)
Quarter: 2021Q2

REPORT INFORMATION
  Report Type: Spontaneous
  Country: FR (occurrence: FR)
  Receive Date: 20210619
  Receipt Date: 20210619
  Transmission Date: 20210717
  Serious: Yes (Hospitalization, Other)
  Sender: FDA-Public Use
  Company Number: FR-ACCORD-228587

PATIENT
  Age: 52 Year
  Sex: Male
  Weight: 104 kg

DRUGS (16)
  1. VITAMINE B12 [Concomitant]
     Active Substance: CYANOCOBALAMIN
  2. SEVELAMER [Concomitant]
     Active Substance: SEVELAMER
  3. PARACETAMOL [Concomitant]
     Active Substance: ACETAMINOPHEN
  4. DULOXETINE. [Concomitant]
     Active Substance: DULOXETINE
  5. AMLODIPINE [Concomitant]
     Active Substance: AMLODIPINE BESYLATE
  6. FUROSEMIDE. [Suspect]
     Active Substance: FUROSEMIDE
     Indication: OEDEMA PERIPHERAL
     Route: 048
     Dates: end: 20190510
  7. PREGABALIN. [Concomitant]
     Active Substance: PREGABALIN
  8. ROSUVASTATIN/ROSUVASTATIN CALCIUM [Concomitant]
     Active Substance: ROSUVASTATIN CALCIUM
  9. DARBEPOETIN ALFA [Concomitant]
     Active Substance: DARBEPOETIN ALFA
  10. ERGOCALCIFEROL. [Concomitant]
     Active Substance: ERGOCALCIFEROL
  11. BISOPROLOL [Concomitant]
     Active Substance: BISOPROLOL
  12. ALFUZOSIN [Concomitant]
     Active Substance: ALFUZOSIN
  13. BACLOFEN. [Concomitant]
     Active Substance: BACLOFEN
  14. RAMIPRIL. [Suspect]
     Active Substance: RAMIPRIL
     Indication: HYPERTENSION
     Route: 048
     Dates: end: 20190507
  15. MYCOPHENOLIC ACID. [Concomitant]
     Active Substance: MYCOPHENOLIC ACID
  16. SMECTITE [Concomitant]
     Active Substance: MONTMORILLONITE

REACTIONS (2)
  - Hypernatraemia [Recovered/Resolved]
  - Acute kidney injury [Recovered/Resolved with Sequelae]

NARRATIVE: CASE EVENT DATE: 20190502
